FAERS Safety Report 7036012-1 (Version None)
Quarter: 2010Q4

REPORT INFORMATION
  Report Type: 
  Country: None (occurrence: None)
  Receive Date: 20101008
  Receipt Date: 20100930
  Transmission Date: 20110411
  Serious: Yes (Other)
  Sender: FDA-Public Use
  Company Number: US-PFIZER INC-2010120557

PATIENT
  Sex: Female
  Weight: 116 kg

DRUGS (6)
  1. CELEBREX [Suspect]
     Indication: FIBROMYALGIA
     Dosage: 200 MG, 1X/DAY
     Route: 048
     Dates: start: 19980101
  2. CELEBREX [Suspect]
     Dosage: 200 MG, 1X/DAY
     Route: 048
     Dates: start: 20100920
  3. ZYRTEC [Concomitant]
     Indication: HYPERSENSITIVITY
     Dosage: 10 MG, UNK
  4. NORTRIPTYLINE [Concomitant]
     Dosage: 25 MG, UNK
  5. TUMS [Concomitant]
     Dosage: UNK
  6. FLONASE [Concomitant]
     Dosage: 16 G, INHALER
     Route: 045

REACTIONS (15)
  - ASTHMA [None]
  - BLISTER [None]
  - BLOOD CHOLESTEROL INCREASED [None]
  - DEPRESSION [None]
  - FLATULENCE [None]
  - GASTROOESOPHAGEAL REFLUX DISEASE [None]
  - HYPERTENSION [None]
  - HYPOTHYROIDISM [None]
  - LIMB DISCOMFORT [None]
  - NASOPHARYNGITIS [None]
  - OEDEMA PERIPHERAL [None]
  - OSTEOARTHRITIS [None]
  - PAIN [None]
  - SINUSITIS [None]
  - WEIGHT INCREASED [None]
